FAERS Safety Report 24198256 (Version 2)
Quarter: 2024Q3

REPORT INFORMATION
  Report Type: Spontaneous
  Country: US (occurrence: US)
  Receive Date: 20240812
  Receipt Date: 20240902
  Transmission Date: 20241016
  Serious: No
  Sender: ASTELLAS
  Company Number: US-ASTELLAS-2024US015684

PATIENT
  Age: 68 Year
  Sex: Female

DRUGS (4)
  1. VEOZAH [Suspect]
     Active Substance: FEZOLINETANT
     Indication: Hot flush
     Dosage: 45 MG, ONCE DAILY
     Route: 065
     Dates: start: 20231016
  2. VEOZAH [Suspect]
     Active Substance: FEZOLINETANT
     Dosage: TWICE DAILY (CUTTING IN HALF, TAKING ONE HALF AM AND ONE HALF PM)
     Route: 065
  3. VEOZAH [Suspect]
     Active Substance: FEZOLINETANT
     Dosage: 45 MG, ONCE DAILY (AT NIGHT)
     Route: 065
     Dates: start: 20240222, end: 20240528
  4. VEOZAH [Suspect]
     Active Substance: FEZOLINETANT
     Dosage: TAKE A HALF PILL IF NEED TO SLEEP WELL OR DURING DAY, ONCE DAILY
     Route: 065

REACTIONS (8)
  - Intervertebral disc degeneration [Unknown]
  - Myalgia [Unknown]
  - Arthralgia [Unknown]
  - Mobility decreased [Unknown]
  - Middle insomnia [Unknown]
  - Dry mouth [Unknown]
  - Wrong technique in product usage process [Unknown]
  - Inappropriate schedule of product administration [Unknown]
